FAERS Safety Report 18307796 (Version 2)
Quarter: 2020Q4

REPORT INFORMATION
  Report Type: Spontaneous
  Country: US (occurrence: US)
  Receive Date: 20200924
  Receipt Date: 20201006
  Transmission Date: 20210113
  Serious: Yes (Other)
  Sender: FDA-Public Use
  Company Number: US-PFIZER INC-2020343384

PATIENT
  Age: 41 Year
  Sex: Female

DRUGS (1)
  1. IBRANCE [Suspect]
     Active Substance: PALBOCICLIB
     Indication: BREAST CANCER METASTATIC
     Dosage: 125 MG, DAILY (28 DAY SUPPLY)

REACTIONS (5)
  - Fatigue [Unknown]
  - Neoplasm progression [Unknown]
  - Cancer pain [Unknown]
  - Neuropathy peripheral [Unknown]
  - Impaired work ability [Unknown]

NARRATIVE: CASE EVENT DATE: 20200824
